FAERS Safety Report 10461507 (Version 2)
Quarter: 2014Q4

REPORT INFORMATION
  Report Type: Spontaneous
  Country: US (occurrence: None)
  Receive Date: 20140916
  Receipt Date: 20141028
  Transmission Date: 20150528
  Serious: No
  Sender: FDA-Public Use
  Company Number: 2014-US-011423

PATIENT
  Age: 47 Year
  Sex: Female

DRUGS (1)
  1. XYREM [Suspect]
     Active Substance: SODIUM OXYBATE
     Indication: NARCOLEPSY
     Route: 048
     Dates: start: 201006

REACTIONS (5)
  - Impaired gastric emptying [None]
  - Ventricular tachycardia [None]
  - Supraventricular tachycardia [None]
  - Glaucoma [None]
  - Atrial tachycardia [None]

NARRATIVE: CASE EVENT DATE: 2010
